FAERS Safety Report 11633369 (Version 1)
Quarter: 2015Q4

REPORT INFORMATION
  Report Type: Spontaneous
  Country: US (occurrence: US)
  Receive Date: 20151015
  Receipt Date: 20151015
  Transmission Date: 20160304
  Serious: Yes (Other)
  Sender: FDA-Public Use
  Company Number: US-UCBSA-2015027597

PATIENT
  Age: 55 Year
  Sex: Female
  Weight: 103 kg

DRUGS (3)
  1. CIMZIA [Suspect]
     Active Substance: CERTOLIZUMAB PEGOL
     Indication: PSORIASIS
     Dosage: 400 MG, MONTHLY (QM)
     Dates: start: 201505
  2. CIMZIA [Suspect]
     Active Substance: CERTOLIZUMAB PEGOL
     Indication: OFF LABEL USE
  3. CIMZIA [Suspect]
     Active Substance: CERTOLIZUMAB PEGOL
     Indication: PSORIATIC ARTHROPATHY

REACTIONS (9)
  - Urinary tract infection [Not Recovered/Not Resolved]
  - Off label use [Unknown]
  - Tremor [Unknown]
  - Back pain [Recovered/Resolved]
  - Fungal infection [Not Recovered/Not Resolved]
  - Drug ineffective [Unknown]
  - Nephrolithiasis [Unknown]
  - Wrong technique in product usage process [Unknown]
  - Cough [Recovering/Resolving]

NARRATIVE: CASE EVENT DATE: 2015
